FAERS Safety Report 13736732 (Version 1)
Quarter: 2017Q3

REPORT INFORMATION
  Report Type: Spontaneous
  Country: US (occurrence: US)
  Receive Date: 20170710
  Receipt Date: 20170710
  Transmission Date: 20171127
  Serious: No
  Sender: FDA-Public Use
  Company Number: US-ALLERGAN-1724248US

PATIENT
  Age: 49 Year
  Sex: Female

DRUGS (2)
  1. COGENTIN [Concomitant]
     Active Substance: BENZTROPINE MESYLATE
  2. VRAYLAR [Suspect]
     Active Substance: CARIPRAZINE
     Indication: BIPOLAR I DISORDER
     Dosage: 6 MG, UNK
     Route: 048

REACTIONS (2)
  - Extrapyramidal disorder [Not Recovered/Not Resolved]
  - Muscle twitching [Not Recovered/Not Resolved]
